FAERS Safety Report 7747636-8 (Version None)
Quarter: 2011Q3

REPORT INFORMATION
  Report Type: 
  Country: None (occurrence: None)
  Receive Date: 20110913
  Receipt Date: 20110907
  Transmission Date: 20111222
  Serious: Yes (Other)
  Sender: FDA-Public Use
  Company Number: DE-PFIZER INC-2011210189

PATIENT
  Age: 68 Year
  Sex: Female

DRUGS (1)
  1. VENLAFAXINE HCL [Suspect]
     Dosage: 75 MG, UNK

REACTIONS (1)
  - HERPES VIRUS INFECTION [None]
